FAERS Safety Report 13734497 (Version 3)
Quarter: 2017Q3

REPORT INFORMATION
  Report Type: Report from Study
  Country: US (occurrence: US)
  Receive Date: 20170709
  Receipt Date: 20170721
  Transmission Date: 20171127
  Serious: Yes (Other)
  Sender: FDA-Public Use
  Company Number: US-BIOGEN-2016BI00265873

PATIENT
  Age: 29 Year
  Sex: Female

DRUGS (2)
  1. TYSABRI [Suspect]
     Active Substance: NATALIZUMAB
     Dosage: INFUSED OVER 1 HOUR
     Route: 042
     Dates: start: 20170710
  2. TYSABRI [Suspect]
     Active Substance: NATALIZUMAB
     Indication: MULTIPLE SCLEROSIS
     Dosage: INFUSED OVER 1 HOUR
     Route: 042
     Dates: start: 20151102, end: 20160502

REACTIONS (3)
  - Haemorrhage [Unknown]
  - Maternal exposure during pregnancy [Recovered/Resolved]
  - Caesarean section [Unknown]

NARRATIVE: CASE EVENT DATE: 20160601
